FAERS Safety Report 15666299 (Version 1)
Quarter: 2018Q4

REPORT INFORMATION
  Report Type: Spontaneous
  Country: US (occurrence: US)
  Receive Date: 20181128
  Receipt Date: 20181128
  Transmission Date: 20190205
  Serious: Yes (Hospitalization)
  Sender: FDA-Public Use
  Company Number: None

PATIENT
  Age: 58 Year
  Sex: Female

DRUGS (11)
  1. NADOLOL 80MG [Concomitant]
  2. SENSIPAR [Concomitant]
     Active Substance: CINACALCET HYDROCHLORIDE
     Dates: start: 20181029
  3. OXCARBAZEPINE. [Suspect]
     Active Substance: OXCARBAZEPINE
     Indication: SCHIZOAFFECTIVE DISORDER
     Route: 048
     Dates: start: 20181004, end: 20181023
  4. LEVOTHYROXINE 75MCG [Concomitant]
     Active Substance: LEVOTHYROXINE
  5. LANTUS [Concomitant]
     Active Substance: INSULIN GLARGINE
  6. ESCITALOPRAM [Concomitant]
     Active Substance: ESCITALOPRAM OXALATE
  7. MEMANTINE. [Concomitant]
     Active Substance: MEMANTINE
  8. LACTULOSE 60ML [Concomitant]
  9. FUROSEMIDE 40MG [Concomitant]
     Active Substance: FUROSEMIDE
  10. RISPERIDONE 6MG [Concomitant]
     Active Substance: RISPERIDONE
  11. SPIRONOLACTONE 25MG [Concomitant]
     Active Substance: SPIRONOLACTONE

REACTIONS (5)
  - Anger [None]
  - Stevens-Johnson syndrome [None]
  - Hand-foot-and-mouth disease [None]
  - Pancytopenia [None]
  - Drug eruption [None]

NARRATIVE: CASE EVENT DATE: 20181019
